FAERS Safety Report 5369292-9 (Version None)
Quarter: 2007Q2

REPORT INFORMATION
  Report Type: 
  Country: None (occurrence: None)
  Receive Date: 20070625
  Receipt Date: 20070620
  Transmission Date: 20071010
  Serious: Yes (Hospitalization)
  Sender: FDA-Public Use
  Company Number: JP-ELI_LILLY_AND_COMPANY-JP200705007604

PATIENT
  Age: 8 Year
  Sex: Male

DRUGS (11)
  1. ATOMOXETINE HYDROCHLORIDE [Suspect]
     Dosage: 10 MG, DAILY (1/D)
     Route: 048
     Dates: start: 20051122, end: 20051205
  2. ATOMOXETINE HYDROCHLORIDE [Suspect]
     Dosage: 20 MG, DAILY (1/D)
     Route: 048
     Dates: start: 20051206, end: 20060116
  3. ATOMOXETINE HYDROCHLORIDE [Suspect]
     Dosage: 30 MG, DAILY (1/D)
     Route: 048
     Dates: start: 20060117, end: 20070423
  4. ATOMOXETINE HYDROCHLORIDE [Suspect]
     Dosage: 40 MG, DAILY (1/D)
     Route: 048
     Dates: start: 20070424, end: 20070530
  5. ONON [Concomitant]
     Dosage: UNK, UNK
     Route: 048
     Dates: start: 20041210, end: 20070530
  6. ZADITEN [Concomitant]
     Dosage: UNK, UNK
     Route: 048
     Dates: start: 20021101, end: 20070530
  7. RINDERON -V [Concomitant]
     Dosage: UNK, UNK
     Route: 058
  8. FLUNASE [Concomitant]
     Route: 045
  9. WIDECILLIN [Concomitant]
     Dosage: UNK, UNK
     Route: 048
     Dates: start: 20070528, end: 20070530
  10. MUCODYNE [Concomitant]
     Dosage: UNK, UNK
     Route: 048
     Dates: start: 20070527, end: 20070530
  11. HIRUDOID /00723701/ [Concomitant]
     Dosage: UNK, UNK
     Route: 062

REACTIONS (2)
  - GASTROENTERITIS [None]
  - HEPATIC FUNCTION ABNORMAL [None]
